FAERS Safety Report 9631145 (Version 1)
Quarter: 2013Q4

REPORT INFORMATION
  Report Type: Spontaneous
  Country: BR (occurrence: BR)
  Receive Date: 20131018
  Receipt Date: 20131018
  Transmission Date: 20140711
  Serious: Yes (Hospitalization, Other)
  Sender: FDA-Public Use
  Company Number: BR-AMGEN-BRASP2013073462

PATIENT
  Age: 70 Year
  Sex: Female
  Weight: 54 kg

DRUGS (4)
  1. ENBREL [Suspect]
     Indication: RHEUMATOID ARTHRITIS
     Dosage: 50 MG, 1X/WEEK
     Route: 058
     Dates: start: 201101
  2. PREDNISONE [Concomitant]
     Dosage: UNK UNK, UNK
  3. RANITIDINE [Concomitant]
     Indication: GASTRIC DISORDER
     Dosage: UNK UNK, UNK
  4. VENLAFAXINE [Concomitant]
     Indication: HEADACHE
     Dosage: UNK UNK, UNK

REACTIONS (2)
  - Femur fracture [Recovering/Resolving]
  - Fall [Recovering/Resolving]
